FAERS Safety Report 11813580 (Version 12)
Quarter: 2016Q4

REPORT INFORMATION
  Report Type: Report from Study
  Country: BR (occurrence: BR)
  Receive Date: 20151209
  Receipt Date: 20161011
  Transmission Date: 20170206
  Serious: Yes (Hospitalization, Other)
  Sender: FDA-Public Use
  Company Number: PHHY2015BR161055

PATIENT
  Age: 8 Year
  Sex: Male
  Weight: 28 kg

DRUGS (3)
  1. FOLIC ACID. [Concomitant]
     Active Substance: FOLIC ACID
     Indication: SICKLE CELL ANAEMIA
     Dosage: 3 DF, QW
     Route: 048
  2. EXJADE [Suspect]
     Active Substance: DEFERASIROX
     Indication: SICKLE CELL ANAEMIA
     Dosage: 20 MG/KG, QD (1 DF OF 500 MG)
     Route: 048
     Dates: start: 2013
  3. HYDREA [Concomitant]
     Active Substance: HYDROXYUREA
     Indication: SICKLE CELL ANAEMIA
     Dosage: 1 TABLET A DAY AND 2 TABLETS ON SUNDAYS, SINCE 3 YEARS AGO
     Route: 048

REACTIONS (33)
  - Pyrexia [Recovered/Resolved]
  - Haematocrit decreased [Recovered/Resolved]
  - Asthenia [Recovered/Resolved]
  - Hypersensitivity [Recovered/Resolved]
  - Rhinitis [Unknown]
  - Ultrasound Doppler abnormal [Unknown]
  - Crying [Recovered/Resolved]
  - Fatigue [Not Recovered/Not Resolved]
  - Drug ineffective [Unknown]
  - Tremor [Recovered/Resolved]
  - Ocular icterus [Recovered/Resolved]
  - Pain in extremity [Recovered/Resolved]
  - Gait disturbance [Recovered/Resolved]
  - Inappropriate schedule of drug administration [Unknown]
  - Nasopharyngitis [Unknown]
  - Hepatic siderosis [Not Recovered/Not Resolved]
  - Pneumonia [Recovered/Resolved]
  - Cough [Recovered/Resolved]
  - Serum ferritin increased [Unknown]
  - Erythema [Recovered/Resolved]
  - Heart rate increased [Unknown]
  - Abdominal pain [Recovered/Resolved]
  - Pallor [Recovered/Resolved]
  - Cerebrovascular disorder [Unknown]
  - Arthropod bite [Recovering/Resolving]
  - Nasal obstruction [Recovering/Resolving]
  - Lip discolouration [Recovered/Resolved]
  - Rash pustular [Recovered/Resolved]
  - Allergy to arthropod bite [Unknown]
  - Blister [Recovered/Resolved]
  - Wound infection [Recovered/Resolved]
  - Wound haemorrhage [Unknown]
  - Pruritus [Recovered/Resolved]

NARRATIVE: CASE EVENT DATE: 201505
